FAERS Safety Report 8057504 (Version 2)
Quarter: 2013Q1

REPORT INFORMATION
  Report Type: Spontaneous
  Country: US (occurrence: US)
  Receive Date: 20110727
  Receipt Date: 20130325
  Transmission Date: 20140127
  Serious: Yes (Other)
  Sender: FDA-Public Use
  Company Number: US-ASTRAZENECA-2011SE39297

PATIENT
  Age: 59 Year
  Sex: Female

DRUGS (4)
  1. NEXIUM [Suspect]
     Indication: GASTROOESOPHAGEAL REFLUX DISEASE
     Route: 048
  2. NEXIUM [Suspect]
     Indication: GASTROOESOPHAGEAL REFLUX DISEASE
     Route: 048
  3. NEXIUM [Suspect]
     Indication: HIATUS HERNIA
     Route: 048
  4. LORTAB [Concomitant]

REACTIONS (10)
  - Systemic lupus erythematosus [Unknown]
  - Fibromyalgia [Unknown]
  - Arthritis [Unknown]
  - Deafness [Unknown]
  - Neuropathy peripheral [Unknown]
  - Oesophageal pain [Unknown]
  - Feeling of body temperature change [Unknown]
  - Depressed mood [Unknown]
  - Dry mouth [Unknown]
  - Polydipsia [Unknown]
